FAERS Safety Report 13749120 (Version 1)
Quarter: 2017Q3

REPORT INFORMATION
  Report Type: Spontaneous
  Country: US (occurrence: US)
  Receive Date: 20170713
  Receipt Date: 20170713
  Transmission Date: 20171127
  Serious: Yes (Hospitalization)
  Sender: FDA-Public Use
  Company Number: US-STRIDES ARCOLAB LIMITED-2017SP010708

PATIENT

DRUGS (2)
  1. AMANTADINE HYDROCHLORIDE. [Suspect]
     Active Substance: AMANTADINE HYDROCHLORIDE
     Indication: PRODUCT USED FOR UNKNOWN INDICATION
     Dosage: 100 MG, BID
     Route: 065
  2. AMANTADINE HYDROCHLORIDE. [Suspect]
     Active Substance: AMANTADINE HYDROCHLORIDE
     Dosage: UNK
     Route: 065

REACTIONS (8)
  - Cognitive disorder [Recovered/Resolved]
  - Agitation [Unknown]
  - Drug withdrawal syndrome [Unknown]
  - Formication [Unknown]
  - Insomnia [Unknown]
  - Mood altered [Unknown]
  - Depressed level of consciousness [Unknown]
  - Delirium [Unknown]
